FAERS Safety Report 19299285 (Version 1)
Quarter: 2021Q2

REPORT INFORMATION
  Report Type: Spontaneous
  Country: JP (occurrence: JP)
  Receive Date: 20210524
  Receipt Date: 20210524
  Transmission Date: 20210717
  Serious: Yes (Hospitalization, Other)
  Sender: FDA-Public Use
  Company Number: NVSJ2021JP007955

PATIENT
  Age: 17 Year
  Sex: Male

DRUGS (1)
  1. TEGRETOL [Suspect]
     Active Substance: CARBAMAZEPINE
     Indication: PRODUCT USED FOR UNKNOWN INDICATION
     Dosage: 300 MG
     Route: 048

REACTIONS (5)
  - Pneumonia aspiration [Unknown]
  - Seizure [Unknown]
  - Toxicity to various agents [Recovering/Resolving]
  - Coma [Unknown]
  - Anticonvulsant drug level above therapeutic [Recovering/Resolving]
